FAERS Safety Report 8539140-4 (Version None)
Quarter: 2012Q3

REPORT INFORMATION
  Report Type: 
  Country: None (occurrence: None)
  Receive Date: 20120713
  Receipt Date: 20120629
  Transmission Date: 20120928
  Serious: Yes (Hospitalization, Other)
  Sender: FDA-Public Use
  Company Number: 2012-001244

PATIENT
  Age: 77 Year
  Sex: Female

DRUGS (9)
  1. LIPITOR [Concomitant]
  2. FISH OIL (FISH OIL) [Concomitant]
  3. ACTONEL [Suspect]
     Indication: OSTEOPOROSIS
     Dosage: 35 MG ONCE WEEKLY, ORAL
     Route: 048
     Dates: start: 20041021, end: 20101201
  4. EVISTA [Concomitant]
  5. MOBIC [Concomitant]
  6. SYNTHROID (LEVOTHYROXINE CALCIUM) [Concomitant]
  7. ASPIRIN [Concomitant]
  8. BUSPAR [Concomitant]
  9. VIOXX [Concomitant]

REACTIONS (7)
  - GROIN PAIN [None]
  - STRESS FRACTURE [None]
  - PAIN IN EXTREMITY [None]
  - GAIT DISTURBANCE [None]
  - LIMB ASYMMETRY [None]
  - FEMUR FRACTURE [None]
  - WALKING AID USER [None]
